FAERS Safety Report 20891845 (Version 1)
Quarter: 2022Q2

REPORT INFORMATION
  Report Type: Spontaneous
  Country: HR (occurrence: HR)
  Receive Date: 20220530
  Receipt Date: 20220530
  Transmission Date: 20220721
  Serious: Yes (Other)
  Sender: FDA-Public Use
  Company Number: None

PATIENT
  Sex: Female
  Weight: 50 kg

DRUGS (3)
  1. ZOLOFT [Suspect]
     Active Substance: SERTRALINE HYDROCHLORIDE
     Dosage: 100 MG, 1X/DAY
     Dates: start: 20220418, end: 20220418
  2. RIVOTRIL [Suspect]
     Active Substance: CLONAZEPAM
     Dosage: 10 MG, 1X/DAY
     Dates: start: 20220418, end: 20220418
  3. QUETIAPINE [Suspect]
     Active Substance: QUETIAPINE
     Dosage: 2 G, 1X/DAY
     Dates: start: 20220418, end: 20220418

REACTIONS (3)
  - Intentional overdose [Unknown]
  - Suicide attempt [Unknown]
  - Sopor [Recovered/Resolved]

NARRATIVE: CASE EVENT DATE: 20220418
